FAERS Safety Report 21850599 (Version 3)
Quarter: 2023Q1

REPORT INFORMATION
  Report Type: Spontaneous
  Country: US (occurrence: US)
  Receive Date: 20230111
  Receipt Date: 20230210
  Transmission Date: 20230418
  Serious: Yes (Hospitalization)
  Sender: FDA-Public Use
  Company Number: US-BIOMARINAP-US-2023-147923

PATIENT

DRUGS (1)
  1. VIMIZIM [Suspect]
     Active Substance: ELOSULFASE ALFA
     Indication: Mucopolysaccharidosis IV
     Dosage: 35 MILLIGRAM, QW
     Route: 042
     Dates: start: 201910

REACTIONS (2)
  - Thrombosis [Recovered/Resolved]
  - Catheter placement [Recovered/Resolved]

NARRATIVE: CASE EVENT DATE: 20221201
